FAERS Safety Report 5319741-7 (Version None)
Quarter: 2007Q2

REPORT INFORMATION
  Report Type: 
  Country: None (occurrence: None)
  Receive Date: 20070503
  Receipt Date: 20070501
  Transmission Date: 20071010
  Serious: Yes (Hospitalization)
  Sender: FDA-Public Use
  Company Number: THQ2007A00320

PATIENT
  Age: 59 Year
  Sex: Male

DRUGS (3)
  1. ACTOS [Suspect]
     Indication: DIABETES MELLITUS NON-INSULIN-DEPENDENT
     Dosage: 1 DF (1 DF, EACH MORNING) PER ORAL
     Route: 048
     Dates: start: 20060101
  2. INSULIN [Concomitant]
  3. METFORMIN HCL [Concomitant]

REACTIONS (3)
  - ACUTE MYOCARDIAL INFARCTION [None]
  - DYSGEUSIA [None]
  - WEIGHT INCREASED [None]
